FAERS Safety Report 24576300 (Version 1)
Quarter: 2024Q4

REPORT INFORMATION
  Report Type: Spontaneous
  Country: US (occurrence: None)
  Receive Date: 20241104
  Receipt Date: 20241104
  Transmission Date: 20250114
  Serious: Yes (Other)
  Sender: Public
  Company Number: None

PATIENT
  Sex: Male

DRUGS (8)
  1. NORDITROPIN [Suspect]
     Active Substance: SOMATROPIN
     Indication: Hypopituitarism
     Dosage: FREQ: INJECT 0.3MG UNDER THE SKIN (SUBCUTANEOUS INJECTION) EVERY DAY
     Route: 058
     Dates: start: 20150602
  2. ACYCLOVIR [Concomitant]
     Active Substance: ACYCLOVIR
  3. B12 [Concomitant]
  4. BORAGE OIL [Concomitant]
     Active Substance: BORAGE OIL
  5. A-HYDROCORT [Concomitant]
     Active Substance: HYDROCORTISONE SODIUM SUCCINATE
  6. LEVOTHYROXINE [Concomitant]
     Active Substance: LEVOTHYROXINE
  7. NEXIUM [Concomitant]
     Active Substance: ESOMEPRAZOLE MAGNESIUM
  8. VITAMIN D3 [Concomitant]
     Active Substance: CHOLECALCIFEROL

REACTIONS (3)
  - Accident [None]
  - Amnesia [None]
  - Product dose omission in error [None]
